FAERS Safety Report 18300332 (Version 4)
Quarter: 2021Q2

REPORT INFORMATION
  Report Type: Other
  Country: US (occurrence: US)
  Receive Date: 20200923
  Receipt Date: 20210531
  Transmission Date: 20210717
  Serious: Yes (Hospitalization, Other)
  Sender: FDA-Public Use
  Company Number: US-ROCHE-2679423

PATIENT
  Age: 43 Year
  Sex: Female
  Weight: 79.9 kg

DRUGS (12)
  1. TYLENOL [Concomitant]
     Active Substance: ACETAMINOPHEN
     Route: 048
  2. METOPROLOL. [Concomitant]
     Active Substance: METOPROLOL
     Route: 048
  3. OCREVUS [Suspect]
     Active Substance: OCRELIZUMAB
     Route: 042
  4. ZOLOFT [Concomitant]
     Active Substance: SERTRALINE HYDROCHLORIDE
     Indication: DEPRESSION
     Route: 048
     Dates: start: 2012
  5. TRAMADOL. [Concomitant]
     Active Substance: TRAMADOL
     Indication: ELECTRIC SHOCK
     Route: 048
  6. OCREVUS [Suspect]
     Active Substance: OCRELIZUMAB
     Indication: RELAPSING MULTIPLE SCLEROSIS
     Dosage: DOT?06?APR?2021, 30?OCT?2020, 07?APR?2020, 10?OCT?2019, 02?APR?2019,06?SEP?2018,?22?MAR?2018, 05?APR
     Route: 065
     Dates: start: 20180326
  7. SOLU?MEDROL [Concomitant]
     Active Substance: METHYLPREDNISOLONE SODIUM SUCCINATE
     Route: 042
  8. KLONOPIN [Suspect]
     Active Substance: CLONAZEPAM
     Indication: ANXIETY
     Dosage: 0.5 UNIT NOT REPORTED
     Route: 048
     Dates: start: 2012
  9. BENADRYL [Concomitant]
     Active Substance: DIPHENHYDRAMINE HYDROCHLORIDE
     Route: 042
  10. SYNTHROID [Concomitant]
     Active Substance: LEVOTHYROXINE SODIUM
     Indication: HYPERTHYROIDISM
     Route: 048
  11. VITAMIN B12 [Concomitant]
     Active Substance: CYANOCOBALAMIN
     Route: 030
  12. POTASSIUM [Concomitant]
     Active Substance: POTASSIUM
     Route: 048

REACTIONS (16)
  - Fungal infection [Recovered/Resolved]
  - Diplopia [Recovered/Resolved]
  - Clostridium difficile colitis [Recovered/Resolved]
  - Hyperventilation [Recovered/Resolved]
  - Multiple sclerosis relapse [Recovered/Resolved]
  - Electric shock [Not Recovered/Not Resolved]
  - Pneumonia aspiration [Recovered/Resolved]
  - Large intestine infection [Unknown]
  - Thrombosis [Recovered/Resolved]
  - Headache [Unknown]
  - Cough [Recovered/Resolved]
  - Asthenia [Not Recovered/Not Resolved]
  - Multiple sclerosis [Recovered/Resolved]
  - Sepsis [Recovered/Resolved]
  - Urinary tract infection [Recovered/Resolved]
  - Weight increased [Not Recovered/Not Resolved]

NARRATIVE: CASE EVENT DATE: 2020
